FAERS Safety Report 5343709-8 (Version None)
Quarter: 2007Q2

REPORT INFORMATION
  Report Type: 
  Country: None (occurrence: None)
  Receive Date: 20070604
  Receipt Date: 20070525
  Transmission Date: 20071010
  Serious: Yes (Other)
  Sender: FDA-Public Use
  Company Number: US-JNJFOC-20070506886

PATIENT
  Sex: Female
  Weight: 77.11 kg

DRUGS (6)
  1. DURAGESIC-100 [Suspect]
     Indication: PAIN
     Route: 062
  2. XANAX [Concomitant]
     Indication: ANXIETY
     Dosage: AS NEEDED
     Route: 048
  3. DICYCLOMINE [Concomitant]
     Indication: GASTROINTESTINAL DISORDER
     Route: 048
  4. AMITRIPTYLINE HCL [Concomitant]
     Indication: SLEEP DISORDER
     Dosage: AS NEEDED
     Route: 048
  5. OXYCODONE HCL [Concomitant]
     Indication: BREAKTHROUGH PAIN
     Route: 048
  6. LIDOCAINE [Concomitant]
     Indication: PROCTALGIA
     Route: 054

REACTIONS (4)
  - DIARRHOEA [None]
  - IRRITABLE BOWEL SYNDROME [None]
  - NAUSEA [None]
  - VOMITING [None]
